FAERS Safety Report 6692288-1 (Version None)
Quarter: 2010Q2

REPORT INFORMATION
  Report Type: 
  Country: None (occurrence: None)
  Receive Date: 20100419
  Receipt Date: 20100408
  Transmission Date: 20101027
  Serious: Yes (Disabling, Other)
  Sender: FDA-Public Use
  Company Number: 2010SP020388

PATIENT
  Age: 55 Year
  Sex: Male

DRUGS (1)
  1. LOTRIDERM (CLOTRIMAZOLE  BETAMETHASONE  / DIPROPIONATE /00820601/) [Suspect]
     Indication: DRUG USE FOR UNKNOWN INDICATION

REACTIONS (9)
  - ABNORMAL BEHAVIOUR [None]
  - ADJUSTMENT DISORDER [None]
  - AGGRESSION [None]
  - ANTISOCIAL BEHAVIOUR [None]
  - COGNITIVE DISORDER [None]
  - FRONTOTEMPORAL DEMENTIA [None]
  - IMPAIRED WORK ABILITY [None]
  - JUDGEMENT IMPAIRED [None]
  - PERSONALITY CHANGE [None]
